FAERS Safety Report 17389148 (Version 2)
Quarter: 2020Q1

REPORT INFORMATION
  Report Type: Report from Study
  Country: None (occurrence: FR)
  Receive Date: 20200206
  Receipt Date: 20200214
  Transmission Date: 20200409
  Serious: Yes (Hospitalization, Other)
  Sender: FDA-Public Use
  Company Number: FR-ABBVIE-19S-056-2798626-00

PATIENT
  Age: 77 Year
  Sex: Male
  Weight: 56 kg

DRUGS (2)
  1. DUODOPA [Suspect]
     Active Substance: CARBIDOPA\LEVODOPA
     Indication: PARKINSON^S DISEASE
     Dosage: 4.6 ML/HOUR CONTINUOUSLY DURING THE DAY; 3ML/H CONTINUOUSLY DURING NIGHT AND 3 ML FOR ED
     Route: 050
     Dates: start: 20190212, end: 2019
  2. DUODOPA [Suspect]
     Active Substance: CARBIDOPA\LEVODOPA
     Dosage: 4,5 ML/HOUR CONTINUOUSLY DURING THE DAY; 3ML/H CONTINUOUSLY DURING NIGHT AND 3 ML FOR ED
     Route: 050
     Dates: start: 2019, end: 20200211

REACTIONS (13)
  - Constipation [Recovered/Resolved]
  - Weight increased [Unknown]
  - Lung disorder [Unknown]
  - General physical health deterioration [Unknown]
  - Oropharyngeal discomfort [Unknown]
  - Incorrect route of product administration [Unknown]
  - Device dislocation [Unknown]
  - Drug ineffective [Unknown]
  - Device dislocation [Recovered/Resolved]
  - Dyskinesia [Not Recovered/Not Resolved]
  - Device occlusion [Unknown]
  - Dysphagia [Unknown]
  - Diarrhoea [Recovered/Resolved]

NARRATIVE: CASE EVENT DATE: 2019
